FAERS Safety Report 9290941 (Version 3)
Quarter: 2013Q3

REPORT INFORMATION
  Report Type: Spontaneous
  Country: JP (occurrence: JP)
  Receive Date: 20130515
  Receipt Date: 20130709
  Transmission Date: 20140515
  Serious: Yes (Death, Hospitalization, Other)
  Sender: FDA-Public Use
  Company Number: JP-BAYER-2012-125076

PATIENT
  Age: 65 Year
  Sex: Male
  Weight: 82 kg

DRUGS (15)
  1. NEXAVAR [Suspect]
     Indication: HEPATOCELLULAR CARCINOMA
     Dosage: 400 MG, BID
     Route: 048
     Dates: start: 20121024, end: 20130116
  2. NEXAVAR [Suspect]
     Indication: HEPATOCELLULAR CARCINOMA
     Dosage: 400 MG QD
     Route: 048
     Dates: start: 20130313, end: 20130424
  3. DIOVAN [Concomitant]
     Indication: HYPERTENSION
     Dosage: DAILY DOSE 80 MG
     Route: 048
     Dates: start: 20081201, end: 20121127
  4. ALDACTONE A [Concomitant]
     Indication: ASCITES
     Dosage: DAILY DOSE 25 MG
     Route: 048
     Dates: start: 20121212, end: 20130426
  5. PARIET [Concomitant]
     Indication: GASTROENTERITIS RADIATION
     Dosage: DAILY DOSE 10 MG
     Route: 048
     Dates: start: 20120514, end: 20130426
  6. FERO-GRADUMET [Concomitant]
     Indication: DUODENITIS HAEMORRHAGIC
     Dosage: DAILY DOSE 105 MG
     Route: 048
     Dates: start: 20120514, end: 20130426
  7. REBAMIPIDE [Concomitant]
     Indication: GASTROENTERITIS RADIATION
     Dosage: DAILY DOSE 300 MG
     Route: 048
     Dates: start: 20120530, end: 20130426
  8. GASTROM [Concomitant]
     Indication: GASTROENTERITIS RADIATION
     Dosage: DAILY DOSE 3 G
     Route: 048
     Dates: start: 20120530, end: 20130426
  9. KERATINAMIN [Concomitant]
     Indication: DRUG TOXICITY PROPHYLAXIS
     Dosage: UNK
     Route: 061
     Dates: start: 20121017, end: 20130424
  10. SHAKUYAKUKANZOUTOU [Concomitant]
     Indication: MUSCLE SPASMS
     Dosage: UNK
     Route: 048
     Dates: start: 20130327, end: 20130424
  11. ALOSENN [Concomitant]
     Indication: CONSTIPATION
     Dosage: DAILY DOSE 1 G
     Route: 048
     Dates: start: 20120502, end: 20130425
  12. MAGLAX [Concomitant]
     Indication: CONSTIPATION
     Dosage: DAILY DOSE 1320 MG
     Route: 048
     Dates: start: 20111119, end: 20130425
  13. VOLTAREN - SLOW RELEASE [Concomitant]
     Indication: ABDOMINAL PAIN
     Dosage: DAILY DOSE 65 MG
     Route: 048
     Dates: start: 20130403, end: 20130424
  14. NOVORAPID [Concomitant]
     Indication: DIABETES MELLITUS
     Dosage: DAILY DOSE 12 U
     Route: 058
     Dates: start: 20110727, end: 20130424
  15. NOVORAPID [Concomitant]
     Indication: DIABETES MELLITUS
     Dosage: DAILY DOSE 6 U
     Route: 058
     Dates: start: 20110727, end: 20130424

REACTIONS (11)
  - Peritonitis bacterial [Fatal]
  - Hypertension [Recovering/Resolving]
  - Palmar-plantar erythrodysaesthesia syndrome [Recovered/Resolved]
  - Abdominal pain [Fatal]
  - White blood cell count increased [Fatal]
  - Altered state of consciousness [Fatal]
  - Blood potassium increased [Fatal]
  - Renal failure [Fatal]
  - Ascites [Not Recovered/Not Resolved]
  - Oxygen saturation decreased [Not Recovered/Not Resolved]
  - Abdominal distension [Fatal]
